FAERS Safety Report 15106963 (Version 1)
Quarter: 2018Q3

REPORT INFORMATION
  Report Type: Report from Study
  Country: US (occurrence: US)
  Receive Date: 20180704
  Receipt Date: 20180704
  Transmission Date: 20181010
  Serious: Yes (Hospitalization, Other)
  Sender: FDA-Public Use
  Company Number: US-SHIRE-US201822894

PATIENT
  Sex: Male
  Weight: 66.17 kg

DRUGS (1)
  1. GATTEX [Suspect]
     Active Substance: TEDUGLUTIDE\WATER
     Indication: SHORT-BOWEL SYNDROME
     Dosage: 3.31 MG, 1X/DAY:QD
     Route: 050

REACTIONS (2)
  - Urinary tract infection [Unknown]
  - Complication associated with device [Unknown]
